FAERS Safety Report 8244042-7 (Version None)
Quarter: 2012Q1

REPORT INFORMATION
  Report Type: 
  Country: None (occurrence: None)
  Receive Date: 20120329
  Receipt Date: 20120326
  Transmission Date: 20120608
  Serious: Yes (Hospitalization, Other)
  Sender: FDA-Public Use
  Company Number: CA-ABBOTT-12P-028-0918779-00

PATIENT
  Sex: Female
  Weight: 86.26 kg

DRUGS (4)
  1. CYCLOBENZAPRINE HCL [Concomitant]
     Indication: BACK PAIN
     Route: 048
     Dates: start: 20070101
  2. GABAPENTIN [Concomitant]
     Indication: BACK PAIN
     Route: 048
     Dates: start: 20070101
  3. NAPROXEN [Concomitant]
     Indication: BACK PAIN
     Route: 048
     Dates: start: 20070101
  4. HUMIRA [Suspect]
     Indication: RHEUMATOID ARTHRITIS
     Route: 058
     Dates: start: 20110131, end: 20120211

REACTIONS (3)
  - INFECTION [None]
  - IMMUNODEFICIENCY [None]
  - KIDNEY INFECTION [None]
